FAERS Safety Report 8275807-3 (Version None)
Quarter: 2012Q2

REPORT INFORMATION
  Report Type: 
  Country: None (occurrence: None)
  Receive Date: 20120410
  Receipt Date: 20120410
  Transmission Date: 20120825
  Serious: Yes (Other)
  Sender: FDA-Public Use
  Company Number: None

PATIENT
  Age: 57 Year
  Sex: Male
  Weight: 97.977 kg

DRUGS (1)
  1. NEXAVAR [Suspect]
     Dosage: 400MG BID PO
     Route: 048
     Dates: start: 20110830

REACTIONS (1)
  - HALLUCINATION [None]
